FAERS Safety Report 12395806 (Version 1)
Quarter: 2016Q2

REPORT INFORMATION
  Report Type: Report from Study
  Country: US (occurrence: US)
  Receive Date: 20160523
  Receipt Date: 20160523
  Transmission Date: 20160815
  Serious: Yes (Death)
  Sender: FDA-Public Use
  Company Number: US-ABBVIE-11P-163-0840944-00

PATIENT
  Age: 65 Year
  Sex: Female
  Weight: 73.09 kg

DRUGS (2)
  1. HUMIRA [Suspect]
     Active Substance: ADALIMUMAB
     Indication: PSORIASIS
     Route: 058
     Dates: start: 20090915, end: 20110311
  2. COMMERCIAL HUMIRA [Concomitant]
     Indication: PSORIASIS
     Dates: start: 20090915

REACTIONS (2)
  - Metastases to bone [Fatal]
  - Plasma cell myeloma [Fatal]

NARRATIVE: CASE EVENT DATE: 20101215
